FAERS Safety Report 24837852 (Version 4)
Quarter: 2025Q1

REPORT INFORMATION
  Report Type: Report from Study
  Country: US (occurrence: US)
  Receive Date: 20250113
  Receipt Date: 20250213
  Transmission Date: 20250409
  Serious: Yes (Hospitalization)
  Sender: ROCHE
  Company Number: US-ROCHE-10000177471

PATIENT
  Age: 37 Year
  Sex: Female

DRUGS (14)
  1. OCRELIZUMAB [Suspect]
     Active Substance: OCRELIZUMAB
     Indication: Multiple sclerosis
     Route: 065
     Dates: start: 20211229, end: 20220112
  2. OCRELIZUMAB [Suspect]
     Active Substance: OCRELIZUMAB
     Route: 065
     Dates: start: 20220706
  3. OCRELIZUMAB [Suspect]
     Active Substance: OCRELIZUMAB
     Route: 065
     Dates: start: 20240717
  4. PHENTERMINE [Concomitant]
     Active Substance: PHENTERMINE
  5. ZINC [Concomitant]
     Active Substance: ZINC
  6. BACLOFEN [Concomitant]
     Active Substance: BACLOFEN
     Dates: start: 20220706
  7. DULAGLUTIDE [Concomitant]
     Active Substance: DULAGLUTIDE
     Dates: start: 20230301
  8. MODAFINIL [Concomitant]
     Active Substance: MODAFINIL
     Dates: start: 20230110
  9. JUNEL [Concomitant]
     Active Substance: ETHINYL ESTRADIOL\NORETHINDRONE ACETATE
     Dates: start: 20230303
  10. CALCIUM [Concomitant]
     Active Substance: CALCIUM
     Dates: start: 2023
  11. MAGNESIUM [Concomitant]
     Active Substance: MAGNESIUM
     Dates: start: 2023
  12. IXEKIZUMAB [Concomitant]
     Active Substance: IXEKIZUMAB
     Dates: start: 20240305
  13. VITAMINS [Concomitant]
     Active Substance: VITAMINS
     Dates: start: 201809
  14. VITAMIN D [Concomitant]
     Active Substance: VITAMIN D NOS
     Dates: start: 20230110

REACTIONS (3)
  - Pharyngeal abscess [Recovered/Resolved with Sequelae]
  - Muscle abscess [Recovered/Resolved with Sequelae]
  - Thrombophlebitis septic [Recovered/Resolved with Sequelae]

NARRATIVE: CASE EVENT DATE: 20240911
